FAERS Safety Report 9936481 (Version 1)
Quarter: 2014Q1

REPORT INFORMATION
  Report Type: Spontaneous
  Country: US (occurrence: US)
  Receive Date: 20140228
  Receipt Date: 20140228
  Transmission Date: 20141002
  Serious: Yes (Hospitalization)
  Sender: FDA-Public Use
  Company Number: US-AMGEN-USASP2014006126

PATIENT
  Age: 64 Year
  Sex: Female
  Weight: 102.4 kg

DRUGS (4)
  1. ENBREL [Suspect]
     Indication: PSORIATIC ARTHROPATHY
     Dosage: 50 MG, QWK
     Route: 058
     Dates: start: 201202, end: 20131207
  2. ENBREL [Suspect]
     Dosage: UNK
     Route: 065
  3. PREDNISONE [Concomitant]
     Dosage: UNK
  4. INSULIN [Concomitant]
     Dosage: UNK

REACTIONS (3)
  - H1N1 influenza [Unknown]
  - Face oedema [Unknown]
  - Rash [Unknown]
